FAERS Safety Report 20163268 (Version 1)
Quarter: 2021Q4

REPORT INFORMATION
  Report Type: Spontaneous
  Country: US (occurrence: US)
  Receive Date: 20211209
  Receipt Date: 20211209
  Transmission Date: 20220303
  Serious: No
  Sender: FDA-Public Use
  Company Number: US-APOTEX-2021AP045941

PATIENT
  Sex: Female

DRUGS (2)
  1. MOMETASONE FUROATE [Suspect]
     Active Substance: MOMETASONE FUROATE
     Indication: Headache
     Dosage: UNK
     Route: 065
  2. NASONEX [Concomitant]
     Active Substance: MOMETASONE FUROATE
     Indication: Headache
     Dosage: UNK
     Route: 065
     Dates: end: 20211031

REACTIONS (4)
  - Product after taste [Unknown]
  - Product substitution issue [Unknown]
  - Nausea [Unknown]
  - Drug ineffective [Unknown]
